FAERS Safety Report 17609160 (Version 1)
Quarter: 2020Q2

REPORT INFORMATION
  Report Type: Spontaneous
  Country: DE (occurrence: DE)
  Receive Date: 20200401
  Receipt Date: 20200401
  Transmission Date: 20200713
  Serious: Yes (Hospitalization)
  Sender: FDA-Public Use
  Company Number: DE-TEVA-2020-DE-1214143

PATIENT
  Age: 61 Year
  Sex: Female
  Weight: 79.7 kg

DRUGS (5)
  1. CARBOPLATIN. [Suspect]
     Active Substance: CARBOPLATIN
     Indication: OVARIAN CANCER RECURRENT
     Dosage: 612.8?ACTIVE SUBSTANCE DILUTED IN 500ML GLUCOSE 5%
     Route: 042
     Dates: start: 20191128
  2. DIMETINDEN 4 MG [Concomitant]
     Indication: PREMEDICATION
     Dosage: GIVE 4H BEFORE THE CARBOPLATIN ADMINISTRATION
     Route: 042
     Dates: start: 20191128
  3. DEXAMETHASON 20 MG [Concomitant]
     Active Substance: DEXAMETHASONE
     Indication: PREMEDICATION
     Dosage: GIVE 4H BEFORE THE CARBOPLATIN ADMINISTRATION
     Route: 042
     Dates: start: 20191128
  4. GRANISETRON 1 MG [Concomitant]
     Indication: PREMEDICATION
     Dosage: GIVE 4H BEFORE THE CARBOPLATIN ADMINISTRATION
     Route: 042
     Dates: start: 20191128
  5. PACLITAXEL. [Concomitant]
     Active Substance: PACLITAXEL
     Indication: OVARIAN CANCER RECURRENT
     Dosage: 334.2
     Route: 042
     Dates: start: 20191128

REACTIONS (4)
  - Erythema [Recovering/Resolving]
  - Dyspnoea [Recovering/Resolving]
  - Tachycardia [Recovering/Resolving]
  - Flushing [Recovering/Resolving]

NARRATIVE: CASE EVENT DATE: 20191128
